FAERS Safety Report 13072835 (Version 1)
Quarter: 2016Q4

REPORT INFORMATION
  Report Type: Spontaneous
  Country: US (occurrence: US)
  Receive Date: 20161229
  Receipt Date: 20161229
  Transmission Date: 20170207
  Serious: Yes (Hospitalization)
  Sender: FDA-Public Use
  Company Number: US-SA-2016SA128348

PATIENT
  Age: 70 Year
  Sex: Male
  Weight: 111 kg

DRUGS (7)
  1. MIDAZOLAM [Suspect]
     Active Substance: MIDAZOLAM\MIDAZOLAM HYDROCHLORIDE
     Dosage: SINGLE DOSE DAY 7 AND SINGLE DOSE CYCLE 2 DAY1
     Route: 048
  2. CRIZOTINIB [Suspect]
     Active Substance: CRIZOTINIB
     Indication: NEOPLASM MALIGNANT
     Dosage: SINGLE DOSE DAY 7 AND SINGLE DOSE CYCLE 2 DAY1
     Route: 048
  3. TAXOTERE [Suspect]
     Active Substance: DOCETAXEL
     Indication: ACUTE KIDNEY INJURY
     Route: 065
  4. TAXOTERE [Suspect]
     Active Substance: DOCETAXEL
     Indication: ACUTE KIDNEY INJURY
     Route: 065
  5. MIDAZOLAM [Suspect]
     Active Substance: MIDAZOLAM\MIDAZOLAM HYDROCHLORIDE
     Dosage: SINGLE DOSE DAY 7 AND SINGLE DOSE CYCLE 2 DAY1
     Route: 048
  6. RIFAMPICIN [Suspect]
     Active Substance: RIFAMPIN
     Dosage: ONCE DAILY FROM CYCLE 1 DAY 16 TO CYCLE 2 DAY 1
     Route: 048
  7. SPORANOX [Suspect]
     Active Substance: ITRACONAZOLE
     Route: 048

REACTIONS (1)
  - Acute kidney injury [Recovered/Resolved]

NARRATIVE: CASE EVENT DATE: 20160211
